FAERS Safety Report 7462300-0 (Version None)
Quarter: 2011Q2

REPORT INFORMATION
  Report Type: 
  Country: None (occurrence: None)
  Receive Date: 20110506
  Receipt Date: 20110406
  Transmission Date: 20111010
  Serious: Yes (Hospitalization)
  Sender: FDA-Public Use
  Company Number: US-BAYER-201035858NA

PATIENT
  Age: 24 Year
  Sex: Female
  Weight: 158.73 kg

DRUGS (16)
  1. YASMIN [Suspect]
     Indication: PRODUCT USED FOR UNKNOWN INDICATION
     Route: 048
     Dates: start: 20060101, end: 20060622
  2. ADVAIR DISKUS 100/50 [Concomitant]
     Dosage: UNK UNK, BID
  3. TOPAMAX [Concomitant]
     Dosage: 50 MG, UNK
  4. ALBUTEROL [Concomitant]
     Dosage: UNK UNK, PRN
     Route: 055
  5. BLOOD PRESSURE MEDICATIONS [Concomitant]
  6. HEART MEDICATIONS (NOS) [Concomitant]
  7. NSAID'S [Concomitant]
  8. LIPITOR [Concomitant]
  9. SINGULAIR [Concomitant]
  10. FORTAMET [Concomitant]
     Dosage: 500 MG, TID
  11. DIURETICS [Concomitant]
  12. POTASSIUM CHLORIDE [Concomitant]
  13. YAZ [Suspect]
     Indication: PRODUCT USED FOR UNKNOWN INDICATION
     Route: 048
     Dates: start: 20060101, end: 20060622
  14. FLEXERIL [Concomitant]
     Dosage: 10 MG, UNK
  15. COMBIVENT [Concomitant]
     Dosage: 2 PUFF(S), TID
     Route: 055
  16. LAMICTAL [Concomitant]
     Dosage: 25 MG, BID

REACTIONS (1)
  - PULMONARY EMBOLISM [None]
